FAERS Safety Report 17388925 (Version 1)
Quarter: 2020Q1

REPORT INFORMATION
  Report Type: Spontaneous
  Country: US (occurrence: US)
  Receive Date: 20200207
  Receipt Date: 20200207
  Transmission Date: 20200409
  Serious: No
  Sender: FDA-Public Use
  Company Number: US-PFIZER INC-2020052141

PATIENT
  Age: 62 Year
  Sex: Male

DRUGS (1)
  1. NIVESTYM [Suspect]
     Active Substance: FILGRASTIM-AAFI
     Dosage: 480.00 MCG (480.00 J CODE UNITS) PER DOSE EVERY 7 DAYS

REACTIONS (2)
  - Product use issue [Unknown]
  - Off label use [Unknown]
